FAERS Safety Report 16310315 (Version 5)
Quarter: 2020Q1

REPORT INFORMATION
  Report Type: Spontaneous
  Country: US (occurrence: US)
  Receive Date: 20190514
  Receipt Date: 20200319
  Transmission Date: 20200409
  Serious: Yes (Hospitalization, Other)
  Sender: FDA-Public Use
  Company Number: US-SHIRE-US201915577

PATIENT
  Sex: Female

DRUGS (1)
  1. GATTEX [Suspect]
     Active Substance: TEDUGLUTIDE\WATER
     Indication: SHORT-BOWEL SYNDROME
     Dosage: 0.2600 (UNIT UNKNOWN)
     Route: 058
     Dates: start: 20180408

REACTIONS (4)
  - Weight increased [Unknown]
  - Crohn^s disease [Recovering/Resolving]
  - Pyoderma gangrenosum [Unknown]
  - Stoma complication [Not Recovered/Not Resolved]
